FAERS Safety Report 6969850-1 (Version None)
Quarter: 2010Q3

REPORT INFORMATION
  Report Type: 
  Country: None (occurrence: None)
  Receive Date: 20100908
  Receipt Date: 20100830
  Transmission Date: 20110219
  Serious: No
  Sender: FDA-Public Use
  Company Number: US-BIOGENIDEC-2010BI009437

PATIENT
  Sex: Female
  Weight: 63 kg

DRUGS (17)
  1. AVONEX [Suspect]
     Indication: MULTIPLE SCLEROSIS
     Route: 030
     Dates: start: 20000401
  2. AVONEX [Suspect]
     Route: 030
     Dates: end: 20100114
  3. CHOLECALCIFEROL [Concomitant]
     Route: 048
  4. OMEGA 3 FATTY ACID [Concomitant]
     Route: 048
  5. ALENDRONATE SODIUM [Concomitant]
     Route: 048
  6. LISINOPRIL [Concomitant]
     Route: 048
  7. AMLODIPINE BESYLATE [Concomitant]
     Route: 048
  8. SENNA [Concomitant]
     Route: 048
  9. CALCIUM CARBONATE [Concomitant]
     Route: 048
  10. NAPROXEN SODIUM [Concomitant]
     Route: 048
  11. FLAXSEED OIL [Concomitant]
     Route: 048
  12. OXYBUTYNIN [Concomitant]
     Route: 048
  13. FERROUS GLUCONATE [Concomitant]
     Route: 048
  14. ASPIRIN [Concomitant]
     Route: 048
  15. BACLOFEN [Concomitant]
     Route: 048
  16. MULTI-VITAMINS [Concomitant]
     Route: 048
  17. CALCIUM CARBONATE PLUS VITAMIN D3 [Concomitant]
     Route: 048

REACTIONS (3)
  - ALANINE AMINOTRANSFERASE INCREASED [None]
  - ASPARTATE AMINOTRANSFERASE INCREASED [None]
  - HYPERLIPIDAEMIA [None]
